FAERS Safety Report 8419248-4 (Version None)
Quarter: 2012Q2

REPORT INFORMATION
  Report Type: 
  Country: None (occurrence: None)
  Receive Date: 20120530
  Receipt Date: 20120515
  Transmission Date: 20120825
  Serious: Yes (Hospitalization, Other)
  Sender: FDA-Public Use
  Company Number: 2012P1027415

PATIENT
  Age: 27 Year
  Sex: Female
  Weight: 70 kg

DRUGS (1)
  1. CHLORPROMAZINE [Suspect]
     Indication: OVERDOSE
     Dosage: 400 MG, X1

REACTIONS (5)
  - JOINT ANKYLOSIS [None]
  - MYOGLOBINURIA [None]
  - NEUROLEPTIC MALIGNANT SYNDROME [None]
  - PNEUMONIA [None]
  - INCORRECT DOSE ADMINISTERED [None]
